FAERS Safety Report 19989617 (Version 1)
Quarter: 2021Q4

REPORT INFORMATION
  Report Type: Spontaneous
  Country: GB (occurrence: GB)
  Receive Date: 20211025
  Receipt Date: 20211025
  Transmission Date: 20220303
  Serious: Yes (Disabling, Other)
  Sender: FDA-Public Use
  Company Number: None

PATIENT
  Age: 32 Year
  Sex: Male
  Weight: 76.2 kg

DRUGS (5)
  1. PREDNISOLONE [Suspect]
     Active Substance: PREDNISOLONE
     Indication: Rash
     Dosage: 5MG TABLETS X6 FOR 5 DAYS, TAPERING BY 1 TABLET EVERY 5 DAYS
     Route: 048
     Dates: start: 20201214, end: 20210105
  2. PREDNISOLONE [Suspect]
     Active Substance: PREDNISOLONE
     Indication: Asthma
  3. BETNOVATE [Suspect]
     Active Substance: BETAMETHASONE
     Indication: Eczema
     Dosage: 30 GRAMS
     Route: 061
     Dates: start: 20110101, end: 20201215
  4. BECLOMETHASONE\FORMOTEROL [Concomitant]
     Active Substance: BECLOMETHASONE\FORMOTEROL
     Indication: Ill-defined disorder
     Dates: start: 20120101, end: 20210212
  5. antibiotic lymecyclin [Concomitant]
     Dates: start: 202012

REACTIONS (3)
  - Rash [Recovering/Resolving]
  - Dry skin [Unknown]
  - Medication error [Unknown]

NARRATIVE: CASE EVENT DATE: 20200801
